FAERS Safety Report 11810873 (Version 2)
Quarter: 2016Q4

REPORT INFORMATION
  Report Type: Spontaneous
  Country: US (occurrence: US)
  Receive Date: 20151208
  Receipt Date: 20161213
  Transmission Date: 20170206
  Serious: No
  Sender: FDA-Public Use
  Company Number: US-TEVA-615618USA

PATIENT
  Age: 31 Year
  Sex: Female

DRUGS (6)
  1. COPAXONE [Suspect]
     Active Substance: GLATIRAMER ACETATE
     Indication: MULTIPLE SCLEROSIS
     Route: 058
     Dates: start: 20151113
  2. SPIRONOLACTONE. [Concomitant]
     Active Substance: SPIRONOLACTONE
  3. ZANTAC [Concomitant]
     Active Substance: RANITIDINE HYDROCHLORIDE
  4. RECLIPSEN [Concomitant]
     Active Substance: DESOGESTREL\ETHINYL ESTRADIOL
  5. METFORMIN [Concomitant]
     Active Substance: METFORMIN HYDROCHLORIDE
  6. VITAMIN D [Concomitant]
     Active Substance: CHOLECALCIFEROL

REACTIONS (6)
  - Injection site pain [Unknown]
  - Injection site erythema [Unknown]
  - Urticaria [Unknown]
  - Injection site reaction [Not Recovered/Not Resolved]
  - Injection site reaction [Unknown]
  - Injection site warmth [Unknown]

NARRATIVE: CASE EVENT DATE: 20151123
